FAERS Safety Report 6153289-5 (Version None)
Quarter: 2009Q2

REPORT INFORMATION
  Report Type: 
  Country: None (occurrence: None)
  Receive Date: 20090413
  Receipt Date: 20090403
  Transmission Date: 20091009
  Serious: Yes (Hospitalization)
  Sender: FDA-Public Use
  Company Number: JP-AMGEN-US329442

PATIENT
  Sex: Male
  Weight: 76 kg

DRUGS (22)
  1. PANITUMUMAB [Suspect]
     Indication: SQUAMOUS CELL CARCINOMA
     Route: 041
     Dates: start: 20081217, end: 20081217
  2. BRIPLATIN [Suspect]
     Indication: SQUAMOUS CELL CARCINOMA
     Route: 041
     Dates: start: 20081217
  3. FLUOROURACIL [Concomitant]
     Indication: SQUAMOUS CELL CARCINOMA
     Route: 041
     Dates: start: 20081217, end: 20081221
  4. EMPYNASE P [Concomitant]
     Route: 048
  5. MUCODYNE [Concomitant]
     Route: 048
  6. CALCIUM LACTATE [Concomitant]
     Route: 048
     Dates: end: 20090121
  7. BIOFERMIN [Concomitant]
     Route: 048
  8. KYTRIL [Concomitant]
     Route: 041
     Dates: start: 20090109, end: 20090109
  9. DEXART [Concomitant]
     Route: 042
     Dates: start: 20090109, end: 20090112
  10. SOLDEM 3A [Concomitant]
     Route: 041
     Dates: start: 20090109, end: 20090126
  11. PRIMPERAN [Concomitant]
     Route: 042
     Dates: start: 20090110, end: 20090112
  12. SOLULACT D [Concomitant]
     Route: 041
     Dates: start: 20090105, end: 20090117
  13. ASPARA POTASSIUM [Concomitant]
     Route: 041
     Dates: start: 20090108, end: 20090126
  14. LASIX [Concomitant]
     Route: 042
     Dates: start: 20090110, end: 20090116
  15. CONCLYTE-MG [Concomitant]
     Route: 042
     Dates: start: 20090110, end: 20090116
  16. SODIUM CHLORIDE [Concomitant]
     Route: 042
     Dates: start: 20090106, end: 20090116
  17. CALCICOL [Concomitant]
     Route: 042
     Dates: start: 20090113, end: 20090115
  18. RINDERON -V [Concomitant]
     Route: 062
     Dates: start: 20090114
  19. KERATINAMIN [Concomitant]
     Route: 062
     Dates: start: 20090114
  20. BISOLVON [Concomitant]
     Route: 055
  21. ALOTEC [Concomitant]
     Route: 055
  22. CALCIUM CHLORIDE DIHYDRATE [Concomitant]
     Route: 042
     Dates: start: 20090105, end: 20090126

REACTIONS (2)
  - RENAL IMPAIRMENT [None]
  - SEPSIS [None]
